FAERS Safety Report 16895460 (Version 2)
Quarter: 2019Q4

REPORT INFORMATION
  Report Type: Report from Study
  Country: KR (occurrence: KR)
  Receive Date: 20191008
  Receipt Date: 20191014
  Transmission Date: 20200122
  Serious: Yes (Death)
  Sender: FDA-Public Use
  Company Number: KR-JNJFOC-20180203226

PATIENT

DRUGS (20)
  1. MEROPENEM. [Suspect]
     Active Substance: MEROPENEM
     Indication: TUBERCULOSIS
     Route: 042
     Dates: start: 20180109, end: 20180123
  2. DELAMANID [Suspect]
     Active Substance: DELAMANID
     Route: 048
     Dates: start: 20180129, end: 20180712
  3. AMOXICILLIN AND CLAVULANATE POTASSIUM [Suspect]
     Active Substance: AMOXICILLIN\CLAVULANATE POTASSIUM
     Route: 048
     Dates: start: 20180205, end: 20180220
  4. SEVIKAR HCT [Concomitant]
     Active Substance: AMLODIPINE BESYLATE\HYDROCHLOROTHIAZIDE\OLMESARTAN MEDOXOMIL
     Indication: HYPERTENSION
     Route: 048
     Dates: start: 19950101
  5. GLICLAZIDE [Concomitant]
     Active Substance: GLICLAZIDE
     Route: 048
     Dates: start: 19980101
  6. BEDAQUILINE [Suspect]
     Active Substance: BEDAQUILINE
     Indication: TUBERCULOSIS
     Route: 048
     Dates: start: 20180112, end: 20180123
  7. BEDAQUILINE [Suspect]
     Active Substance: BEDAQUILINE
     Route: 048
     Dates: start: 20180223, end: 20180608
  8. CLOFAZIMINE [Suspect]
     Active Substance: CLOFAZIMINE
     Indication: TUBERCULOSIS
     Route: 048
     Dates: start: 20180109, end: 20180123
  9. MEROPENEM. [Suspect]
     Active Substance: MEROPENEM
     Route: 042
     Dates: start: 20180129, end: 20180220
  10. PARA-AMINOSALICYLIC ACID [Suspect]
     Active Substance: AMINOSALICYLIC ACID
     Indication: TUBERCULOSIS
     Route: 048
     Dates: start: 20180109, end: 20180120
  11. GEMIGLIPTIN [Concomitant]
     Active Substance: GEMIGLIPTIN
     Indication: TYPE 1 DIABETES MELLITUS
     Route: 048
     Dates: start: 19980101
  12. R-THIOCTIC ACID TROMETAMINE [Concomitant]
     Indication: TYPE 1 DIABETES MELLITUS
     Route: 048
     Dates: start: 19980101
  13. DELAMANID [Suspect]
     Active Substance: DELAMANID
     Indication: TUBERCULOSIS
     Route: 048
     Dates: start: 20180112, end: 20180123
  14. GLICLAZIDE [Concomitant]
     Active Substance: GLICLAZIDE
     Indication: TYPE 1 DIABETES MELLITUS
     Route: 048
     Dates: start: 19980101
  15. LINEZOLID. [Suspect]
     Active Substance: LINEZOLID
     Route: 042
     Dates: start: 20180131
  16. LINEZOLID. [Suspect]
     Active Substance: LINEZOLID
     Indication: TUBERCULOSIS
     Route: 042
     Dates: start: 20180109, end: 20180123
  17. BEDAQUILINE [Suspect]
     Active Substance: BEDAQUILINE
     Route: 048
     Dates: start: 20180208, end: 20180222
  18. PARA-AMINOSALICYLIC ACID [Suspect]
     Active Substance: AMINOSALICYLIC ACID
     Route: 048
     Dates: start: 20180209
  19. AMOXICILLIN AND CLAVULANATE POTASSIUM [Suspect]
     Active Substance: AMOXICILLIN\CLAVULANATE POTASSIUM
     Indication: TUBERCULOSIS
     Route: 048
     Dates: start: 20180109, end: 20180201
  20. PYRIDOXINE [Concomitant]
     Active Substance: PYRIDOXINE
     Indication: VITAMIN SUPPLEMENTATION
     Route: 050
     Dates: start: 20180110

REACTIONS (16)
  - Dyspepsia [Not Recovered/Not Resolved]
  - Aspartate aminotransferase increased [Recovering/Resolving]
  - Pruritus [Recovered/Resolved]
  - Alanine aminotransferase increased [Recovered/Resolved]
  - Platelet count decreased [Recovered/Resolved]
  - Hypophagia [Not Recovered/Not Resolved]
  - Asthenia [Not Recovered/Not Resolved]
  - Vomiting [Recovered/Resolved]
  - Decreased appetite [Recovered/Resolved]
  - White blood cell count decreased [Recovered/Resolved]
  - Diarrhoea [Recovered/Resolved]
  - Paraesthesia [Recovered/Resolved]
  - Hepatocellular carcinoma [Fatal]
  - Anaemia [Recovered/Resolved]
  - Cough [Recovered/Resolved]
  - Blood bilirubin increased [Not Recovered/Not Resolved]

NARRATIVE: CASE EVENT DATE: 20180112
